FAERS Safety Report 9036220 (Version 5)
Quarter: 2013Q2

REPORT INFORMATION
  Report Type: Spontaneous
  Country: US (occurrence: US)
  Receive Date: 20130129
  Receipt Date: 20130621
  Transmission Date: 20140414
  Serious: Yes (Other)
  Sender: FDA-Public Use
  Company Number: PHEH2013US002262

PATIENT
  Sex: Female
  Weight: 120.3 kg

DRUGS (37)
  1. GILENYA [Suspect]
     Indication: MULTIPLE SCLEROSIS
     Dosage: 0.5 MG, QD
     Route: 048
     Dates: start: 201104, end: 201211
  2. TYSABRI [Suspect]
     Indication: MULTIPLE SCLEROSIS
     Dosage: 300 MG, QMO
     Route: 042
     Dates: start: 20121127, end: 20130102
  3. FEXOFENADINE [Concomitant]
  4. PRO-AIR [Concomitant]
  5. ADVAIR [Concomitant]
  6. FLUTICASONE [Concomitant]
  7. NEXIUM [Concomitant]
  8. LOSARTAN [Concomitant]
  9. POTASSIUM [Concomitant]
  10. TRILIPIX [Concomitant]
  11. NIASPAN [Concomitant]
  12. SIMVASTATIN [Concomitant]
     Dosage: 20 MG, DAILY
     Route: 048
  13. TRAZODONE [Concomitant]
     Indication: SLEEP DISORDER
     Dosage: 150 MG, BEDTIME
     Route: 048
  14. METFORMIN [Concomitant]
  15. LYRICA [Concomitant]
     Indication: NEURALGIA
     Dosage: 200 MG, TID
     Route: 048
  16. ZOLPIDEM [Concomitant]
     Indication: SLEEP DISORDER
     Dosage: 10 MG, PRN, AT BEDTIME
     Route: 048
  17. PRIMIDONE [Concomitant]
     Indication: TREMOR
     Dosage: 50 MG, TID
     Route: 048
  18. NUVIGIL [Concomitant]
     Indication: ASTHENIA
     Dosage: 150 MG, UNK
     Route: 048
  19. BACLOFEN [Concomitant]
     Indication: MUSCLE SPASTICITY
     Dosage: 10 MG, QID
     Route: 048
  20. BACLOFEN [Concomitant]
     Indication: MUSCLE SPASMS
     Dosage: 10 MG, BID
  21. PERCOCET [Concomitant]
     Indication: PAIN
  22. CALCIUM + VITAMIN D [Concomitant]
  23. OMEGA-3 FATTY ACIDS [Concomitant]
  24. BUFFERIN [Concomitant]
  25. MULTI-VIT [Concomitant]
  26. GLUCOSAMINE [Concomitant]
  27. BUPROPION [Concomitant]
     Dosage: 150 MG, 3 PER DAY
  28. CYMBALTA [Concomitant]
     Dosage: 2 DF, QD
     Route: 048
  29. VITAMIN B12 [Concomitant]
  30. SIMETHICONE [Concomitant]
  31. ASPIRIN [Concomitant]
     Dosage: 325 MG, QD
  32. IBUPROFEN [Concomitant]
     Dosage: 600 MG, QID
  33. TYLENOL [Concomitant]
  34. VITAMIN C [Concomitant]
     Dosage: 1000 MG, QD
  35. BUSPAR [Concomitant]
     Route: 048
  36. DIAZEPAM [Concomitant]
     Dosage: 5 MG, BID
     Route: 048
  37. CELEBREX [Concomitant]
     Dosage: 200 MG, BID
     Route: 048

REACTIONS (7)
  - Malignant melanoma in situ [Not Recovered/Not Resolved]
  - Wound [Unknown]
  - Bloody discharge [Unknown]
  - Inflammation [Unknown]
  - Skin ulcer [Unknown]
  - Fibrosis [Unknown]
  - Livedo reticularis [Unknown]
